FAERS Safety Report 25869476 (Version 2)
Quarter: 2025Q4

REPORT INFORMATION
  Report Type: Spontaneous
  Country: NZ (occurrence: NZ)
  Receive Date: 20251001
  Receipt Date: 20251120
  Transmission Date: 20260117
  Serious: No
  Sender: PFIZER
  Company Number: NZ-PFIZER INC-PV202500115393

PATIENT
  Sex: Female

DRUGS (1)
  1. ENBREL [Suspect]
     Active Substance: ETANERCEPT
     Dosage: 50 MG, WEEKLY
     Route: 058
     Dates: start: 20250822

REACTIONS (5)
  - Device deployment issue [Unknown]
  - Injection site pain [Recovered/Resolved]
  - Injection site discharge [Recovered/Resolved]
  - Injection site swelling [Recovered/Resolved]
  - Injection site erythema [Recovered/Resolved]

NARRATIVE: CASE EVENT DATE: 20250919
